FAERS Safety Report 15357392 (Version 1)
Quarter: 2018Q3

REPORT INFORMATION
  Report Type: Spontaneous
  Country: US (occurrence: US)
  Receive Date: 20180906
  Receipt Date: 20180906
  Transmission Date: 20181010
  Serious: No
  Sender: FDA-Public Use
  Company Number: US-GLAXOSMITHKLINE-US2018157099

PATIENT
  Age: 71 Year
  Sex: Male

DRUGS (1)
  1. BREO ELLIPTA [Suspect]
     Active Substance: FLUTICASONE FUROATE\VILANTEROL TRIFENATATE
     Indication: EMPHYSEMA
     Dosage: 1 PUFF(S), 1D
     Route: 055
     Dates: start: 201807

REACTIONS (8)
  - Emotional distress [Not Recovered/Not Resolved]
  - Logorrhoea [Not Recovered/Not Resolved]
  - Sleep talking [Not Recovered/Not Resolved]
  - Drug dispensing issue [Unknown]
  - Repetitive speech [Not Recovered/Not Resolved]
  - Anger [Not Recovered/Not Resolved]
  - Inappropriate schedule of drug administration [Unknown]
  - Insomnia [Not Recovered/Not Resolved]

NARRATIVE: CASE EVENT DATE: 20180828
